FAERS Safety Report 7242342-0 (Version None)
Quarter: 2011Q1

REPORT INFORMATION
  Report Type: 
  Country: None (occurrence: None)
  Receive Date: 20110125
  Receipt Date: 20110114
  Transmission Date: 20110831
  Serious: Yes (Hospitalization)
  Sender: FDA-Public Use
  Company Number: US-BIOGENIDEC-2011BI002018

PATIENT
  Age: 53 Year
  Sex: Female

DRUGS (1)
  1. TYSABRI [Suspect]
     Indication: MULTIPLE SCLEROSIS
     Route: 042
     Dates: start: 20070323

REACTIONS (5)
  - HEPATIC ENZYME INCREASED [None]
  - BRONCHITIS [None]
  - PAIN [None]
  - PANCREATITIS [None]
  - GALLBLADDER DISORDER [None]
